FAERS Safety Report 15163959 (Version 2)
Quarter: 2018Q3

REPORT INFORMATION
  Report Type: Report from Study
  Country: JP (occurrence: JP)
  Receive Date: 20180719
  Receipt Date: 20180915
  Transmission Date: 20181010
  Serious: Yes (Life-Threatening, Other)
  Sender: FDA-Public Use
  Company Number: JP-AMGEN-JPNNI2018097654

PATIENT
  Age: 86 Year
  Sex: Male

DRUGS (52)
  1. CARFILZOMIB [Suspect]
     Active Substance: CARFILZOMIB
     Dosage: 45 MG/M2, UNK
     Route: 041
     Dates: start: 20171115, end: 20171116
  2. CARFILZOMIB [Suspect]
     Active Substance: CARFILZOMIB
     Dosage: 45 MG/M2, UNK
     Route: 041
     Dates: start: 20171213, end: 20171214
  3. DEXAMETHASONE. [Concomitant]
     Active Substance: DEXAMETHASONE
     Dosage: 9.90 MG, UNK
     Dates: start: 20171025, end: 20171025
  4. DEXAMETHASONE. [Concomitant]
     Active Substance: DEXAMETHASONE
     Dosage: 9.90 MG, UNK
     Dates: start: 20171116, end: 20171116
  5. DEXAMETHASONE. [Concomitant]
     Active Substance: DEXAMETHASONE
     Dosage: 9.90 MG, UNK
     Dates: start: 20171220, end: 20171220
  6. DEXAMETHASONE. [Concomitant]
     Active Substance: DEXAMETHASONE
     Dosage: 9.90 MG, UNK
     Dates: start: 20180115, end: 20180115
  7. DEXAMETHASONE. [Concomitant]
     Active Substance: DEXAMETHASONE
     Dosage: 3.3 MG, UNK
     Dates: start: 20180129, end: 20180129
  8. CARFILZOMIB [Suspect]
     Active Substance: CARFILZOMIB
     Dosage: 56 MG/M2, UNK
     Route: 041
     Dates: start: 20171101, end: 20171102
  9. CARFILZOMIB [Suspect]
     Active Substance: CARFILZOMIB
     Dosage: 45 MG/M2, UNK
     Route: 041
     Dates: start: 20180219, end: 20180220
  10. CARFILZOMIB [Suspect]
     Active Substance: CARFILZOMIB
     Dosage: 45 MG/M2, UNK
     Route: 041
     Dates: start: 20180328, end: 20180329
  11. VALACICLOVIR [Suspect]
     Active Substance: VALACYCLOVIR HYDROCHLORIDE
     Indication: HERPES VIRUS INFECTION
     Dosage: 500 MG, UNK
     Route: 048
     Dates: start: 20171025
  12. DEXAMETHASONE. [Concomitant]
     Active Substance: DEXAMETHASONE
     Dosage: 9.90 MG, UNK
     Dates: start: 20171101, end: 20171101
  13. DEXAMETHASONE. [Concomitant]
     Active Substance: DEXAMETHASONE
     Dosage: 9.90 MG, UNK
     Dates: start: 20171123, end: 20171123
  14. DEXAMETHASONE. [Concomitant]
     Active Substance: DEXAMETHASONE
     Dosage: 9.90 MG, UNK
     Dates: start: 20171129, end: 20171129
  15. DEXAMETHASONE. [Concomitant]
     Active Substance: DEXAMETHASONE
     Dosage: 9.90 MG, UNK
     Dates: start: 20171206, end: 20171206
  16. DEXAMETHASONE. [Concomitant]
     Active Substance: DEXAMETHASONE
     Dosage: 9.90 MG, UNK
     Dates: start: 20180116, end: 20180116
  17. DEXAMETHASONE. [Concomitant]
     Active Substance: DEXAMETHASONE
     Dosage: 3.3 MG, UNK
     Dates: start: 20180206, end: 20180206
  18. CARFILZOMIB [Suspect]
     Active Substance: CARFILZOMIB
     Dosage: 45 MG/M2, UNK
     Route: 041
     Dates: start: 20171129, end: 20171130
  19. DEXAMETHASONE. [Concomitant]
     Active Substance: DEXAMETHASONE
     Dosage: 9.90 MG, UNK
     Dates: start: 20171115, end: 20171115
  20. DEXAMETHASONE. [Concomitant]
     Active Substance: DEXAMETHASONE
     Dosage: 9.90 MG, UNK
     Dates: start: 20171213, end: 20171213
  21. DEXAMETHASONE. [Concomitant]
     Active Substance: DEXAMETHASONE
     Dosage: 9.90 MG, UNK
     Dates: start: 20171214, end: 20171214
  22. DEXAMETHASONE. [Concomitant]
     Active Substance: DEXAMETHASONE
     Dosage: 3.3 MG, UNK
     Dates: start: 20180219, end: 20180219
  23. DEXAMETHASONE. [Concomitant]
     Active Substance: DEXAMETHASONE
     Dosage: 3.3 MG, UNK
     Dates: start: 20180301, end: 20180301
  24. DEXAMETHASONE. [Concomitant]
     Active Substance: DEXAMETHASONE
     Dosage: 3.3 MG, UNK
     Dates: start: 20180328, end: 20180328
  25. DEXAMETHASONE. [Concomitant]
     Active Substance: DEXAMETHASONE
     Dosage: 3.3 MG, UNK
     Dates: start: 20180419
  26. CARFILZOMIB [Suspect]
     Active Substance: CARFILZOMIB
     Dosage: 45 MG/M2, UNK
     Route: 041
     Dates: start: 20180411, end: 20180412
  27. DEXAMETHASONE. [Concomitant]
     Active Substance: DEXAMETHASONE
     Dosage: 9.90 MG, UNK
     Dates: start: 20171026, end: 20171026
  28. DEXAMETHASONE. [Concomitant]
     Active Substance: DEXAMETHASONE
     Dosage: 3.3 MG, UNK
     Dates: start: 20180130, end: 20180130
  29. DEXAMETHASONE. [Concomitant]
     Active Substance: DEXAMETHASONE
     Dosage: 3.3 MG, UNK
     Dates: start: 20180329, end: 20180329
  30. DEXAMETHASONE. [Concomitant]
     Active Substance: DEXAMETHASONE
     Dosage: 3.3 MG, UNK
     Dates: start: 20180418, end: 20180418
  31. CARFILZOMIB [Suspect]
     Active Substance: CARFILZOMIB
     Dosage: 45 MG/M2, UNK
     Route: 041
     Dates: start: 20180115, end: 20180116
  32. CARFILZOMIB [Suspect]
     Active Substance: CARFILZOMIB
     Dosage: 45 MG/M2, UNK
     Route: 041
     Dates: start: 20180404, end: 20180405
  33. DEXAMETHASONE. [Concomitant]
     Active Substance: DEXAMETHASONE
     Dosage: 9.90 MG, UNK
     Dates: start: 20171122, end: 20171122
  34. DEXAMETHASONE. [Concomitant]
     Active Substance: DEXAMETHASONE
     Dosage: 3.3 MG, UNK
     Dates: start: 20180205, end: 20180205
  35. DEXAMETHASONE. [Concomitant]
     Active Substance: DEXAMETHASONE
     Dosage: 3.3 MG, UNK
     Dates: start: 20180228, end: 20180228
  36. CARFILZOMIB [Suspect]
     Active Substance: CARFILZOMIB
     Dosage: 45 MG/M2, UNK
     Route: 041
     Dates: start: 20180129, end: 20180130
  37. DEXAMETHASONE. [Concomitant]
     Active Substance: DEXAMETHASONE
     Dosage: 9.90 MG, UNK
     Dates: start: 20171221, end: 20171221
  38. DEXAMETHASONE. [Concomitant]
     Active Substance: DEXAMETHASONE
     Dosage: 3.3 MG, UNK
     Dates: start: 20180404, end: 20180404
  39. DEXAMETHASONE. [Concomitant]
     Active Substance: DEXAMETHASONE
     Dosage: 3.3 MG, UNK
     Dates: start: 20180411, end: 20180411
  40. CARFILZOMIB [Suspect]
     Active Substance: CARFILZOMIB
     Indication: PLASMA CELL MYELOMA
     Dosage: 20 MG/M2, UNK
     Route: 041
     Dates: start: 20171025, end: 20171026
  41. CARFILZOMIB [Suspect]
     Active Substance: CARFILZOMIB
     Dosage: 45 MG/M2, UNK
     Route: 041
     Dates: start: 20171206, end: 20171207
  42. CARFILZOMIB [Suspect]
     Active Substance: CARFILZOMIB
     Dosage: 45 MG/M2, UNK
     Route: 041
     Dates: start: 20180205, end: 20180206
  43. CARFILZOMIB [Suspect]
     Active Substance: CARFILZOMIB
     Dosage: 45 MG/M2, UNK
     Route: 041
     Dates: start: 20180312, end: 20180313
  44. DEXAMETHASONE. [Concomitant]
     Active Substance: DEXAMETHASONE
     Dosage: 3.3 MG, UNK
     Dates: start: 20180312, end: 20180312
  45. DEXAMETHASONE. [Concomitant]
     Active Substance: DEXAMETHASONE
     Dosage: 3.3 MG, UNK
     Dates: start: 20180405, end: 20180405
  46. DEXAMETHASONE. [Concomitant]
     Active Substance: DEXAMETHASONE
     Dosage: 3.3 MG, UNK
     Dates: start: 20180412, end: 20180412
  47. CARFILZOMIB [Suspect]
     Active Substance: CARFILZOMIB
     Dosage: 45 MG/M2, UNK
     Route: 041
     Dates: start: 20180228, end: 20180301
  48. DEXAMETHASONE. [Concomitant]
     Active Substance: DEXAMETHASONE
     Dosage: 9.90 MG, UNK
     Dates: start: 20171102, end: 20171102
  49. DEXAMETHASONE. [Concomitant]
     Active Substance: DEXAMETHASONE
     Dosage: 9.90 MG, UNK
     Dates: start: 20171130, end: 20171130
  50. DEXAMETHASONE. [Concomitant]
     Active Substance: DEXAMETHASONE
     Dosage: 9.90 MG, UNK
     Dates: start: 20171207, end: 20171207
  51. DEXAMETHASONE. [Concomitant]
     Active Substance: DEXAMETHASONE
     Dosage: 3.3 MG, UNK
     Dates: start: 20180220, end: 20180220
  52. DEXAMETHASONE. [Concomitant]
     Active Substance: DEXAMETHASONE
     Dosage: 3.3 MG, UNK
     Dates: start: 20180313, end: 20180313

REACTIONS (6)
  - Pneumonia [Recovered/Resolved]
  - Anaemia [Recovered/Resolved]
  - Sepsis [Recovered/Resolved]
  - Platelet count decreased [Recovered/Resolved]
  - Hyperuricaemia [Recovered/Resolved]
  - Alanine aminotransferase increased [Recovered/Resolved]

NARRATIVE: CASE EVENT DATE: 20171030
